FAERS Safety Report 5753894-1 (Version None)
Quarter: 2008Q2

REPORT INFORMATION
  Report Type: 
  Country: None (occurrence: None)
  Receive Date: 20080530
  Receipt Date: 20080528
  Transmission Date: 20081010
  Serious: Yes (Hospitalization)
  Sender: FDA-Public Use
  Company Number: B0519678A

PATIENT
  Age: 39 Year
  Sex: Male

DRUGS (7)
  1. ALBUTEROL [Suspect]
     Indication: ASTHMA
     Route: 055
  2. IPRATROPIUM BROMIDE [Concomitant]
     Route: 055
  3. HYDROCORTISONE [Concomitant]
     Route: 042
  4. MAGNESIUM SULFATE [Concomitant]
  5. PREDNISOLONE [Concomitant]
     Dosage: 30MG PER DAY
  6. AMOXICILLIN [Concomitant]
     Dosage: 1500MG PER DAY
  7. CORTICOSTEROID [Concomitant]
     Route: 055

REACTIONS (2)
  - LACTIC ACIDOSIS [None]
  - RESPIRATORY FAILURE [None]
